FAERS Safety Report 5100605-9 (Version None)
Quarter: 2006Q3

REPORT INFORMATION
  Report Type: 
  Country: None (occurrence: None)
  Receive Date: 20060907
  Receipt Date: 20060907
  Transmission Date: 20061208
  Serious: Yes (Other)
  Sender: FDA-Public Use
  Company Number: None

PATIENT
  Age: 87 Year
  Sex: Male
  Weight: 95.3 kg

DRUGS (8)
  1. METRONIDAZOLE [Suspect]
     Dosage: 500 MG , TID, BY MOUTH
     Dates: start: 20060614, end: 20060618
  2. ACETAMINOPHEN [Concomitant]
  3. OXYCODONE/ACETAMINOPHEN [Concomitant]
  4. FERROUS SULFATE TAB [Concomitant]
  5. HEPARIN [Concomitant]
  6. MULTIVITAMIN [Concomitant]
  7. SYNTHROID [Concomitant]
  8. DARBEPOETIN ALFA [Concomitant]

REACTIONS (2)
  - ANAPHYLACTIC REACTION [None]
  - RASH [None]
